FAERS Safety Report 10873891 (Version 1)
Quarter: 2015Q1

REPORT INFORMATION
  Report Type: Report from Study
  Country: DE (occurrence: DE)
  Receive Date: 20150227
  Receipt Date: 20150227
  Transmission Date: 20150721
  Serious: Yes (Hospitalization, Disabling, Other)
  Sender: FDA-Public Use
  Company Number: DE-MILLENNIUM PHARMACEUTICALS, INC.-2011-04203

PATIENT
  Age: 73 Year
  Sex: Male

DRUGS (6)
  1. DEXAMETHASONE. [Concomitant]
     Active Substance: DEXAMETHASONE
     Indication: PLASMA CELL MYELOMA
     Dosage: UNK
     Dates: start: 20110523, end: 20110709
  2. MELPHALAN [Concomitant]
     Active Substance: MELPHALAN
     Indication: PLASMA CELL MYELOMA
     Dosage: 18 MG, UNK
     Dates: start: 20110712, end: 20110715
  3. VELCADE [Suspect]
     Active Substance: BORTEZOMIB
     Dosage: 2.6 UNK, UNK
     Route: 065
     Dates: start: 20110712, end: 20110715
  4. DEXAMETHASONE. [Concomitant]
     Active Substance: DEXAMETHASONE
     Dosage: UNK
     Dates: start: 20110712
  5. CLEXANE [Concomitant]
     Active Substance: ENOXAPARIN SODIUM
     Dosage: UNK
     Dates: start: 20110526
  6. VELCADE [Suspect]
     Active Substance: BORTEZOMIB
     Indication: PLASMA CELL MYELOMA
     Dosage: 2.6 MG, UNK
     Route: 065
     Dates: start: 20110523, end: 20110715

REACTIONS (13)
  - Gamma-glutamyltransferase increased [None]
  - Infection [None]
  - Pain [Recovered/Resolved with Sequelae]
  - Thrombocytopenia [None]
  - Blood alkaline phosphatase increased [None]
  - Blood creatine increased [None]
  - Leukopenia [None]
  - Agitation [None]
  - Anaemia [None]
  - Nausea [None]
  - Genital haemorrhage [None]
  - Arthralgia [Recovered/Resolved with Sequelae]
  - Oedema [None]

NARRATIVE: CASE EVENT DATE: 20110815
